FAERS Safety Report 8202959-3 (Version None)
Quarter: 2012Q1

REPORT INFORMATION
  Report Type: 
  Country: None (occurrence: None)
  Receive Date: 20120312
  Receipt Date: 20120305
  Transmission Date: 20120608
  Serious: Yes (Other)
  Sender: FDA-Public Use
  Company Number: BR-PFIZER INC-2009276505

PATIENT
  Age: 54 Year
  Sex: Female
  Weight: 66 kg

DRUGS (6)
  1. VARENICLINE TARTRATE [Suspect]
     Indication: TOBACCO USER
     Dosage: 0.5 MG, 1X/DAY
     Route: 048
     Dates: start: 20090924
  2. AKINETON [Concomitant]
     Indication: TREMOR
     Dosage: UNK
     Dates: start: 19970101
  3. VARENICLINE TARTRATE [Suspect]
     Indication: SMOKING CESSATION THERAPY
  4. VARENICLINE TARTRATE [Suspect]
     Indication: NICOTINE DEPENDENCE
     Dosage: 1 MG, 2X/DAY
     Route: 048
     Dates: start: 20091002
  5. LITHIUM CARBONATE [Concomitant]
     Indication: BIPOLAR DISORDER
     Dosage: 300 MG, UNK
     Dates: start: 19970101
  6. CLONAZEPAM [Concomitant]
     Indication: INSOMNIA
     Dosage: 2 MG, UNK
     Dates: start: 19970101

REACTIONS (8)
  - INCREASED APPETITE [None]
  - INCORRECT DOSE ADMINISTERED [None]
  - INTERVERTEBRAL DISC PROTRUSION [None]
  - DEPRESSION [None]
  - NERVOUSNESS [None]
  - HEART RATE INCREASED [None]
  - IRRITABILITY [None]
  - ANXIETY [None]
